FAERS Safety Report 6458768-9 (Version None)
Quarter: 2009Q4

REPORT INFORMATION
  Report Type: 
  Country: None (occurrence: None)
  Receive Date: 20091127
  Receipt Date: 20091120
  Transmission Date: 20100525
  Serious: Yes (Other)
  Sender: FDA-Public Use
  Company Number: GB-ROCHE-669989

PATIENT
  Age: 10 Year
  Sex: Female

DRUGS (1)
  1. TAMIFLU [Suspect]
     Dosage: ROUTE, FORM AND FREQUENCY NOT REPORTED.
     Route: 065

REACTIONS (1)
  - VISUAL IMPAIRMENT [None]
